FAERS Safety Report 25826959 (Version 1)
Quarter: 2025Q3

REPORT INFORMATION
  Report Type: Spontaneous
  Country: US (occurrence: US)
  Receive Date: 20250920
  Receipt Date: 20250920
  Transmission Date: 20251021
  Serious: Yes (Death, Hospitalization, Other)
  Sender: AMGEN
  Company Number: US-AMGEN-USASP2025185856

PATIENT
  Age: 79 Year
  Sex: Male

DRUGS (1)
  1. BLINATUMOMAB [Suspect]
     Active Substance: BLINATUMOMAB
     Indication: B-cell type acute leukaemia
     Route: 065

REACTIONS (6)
  - Cardio-respiratory arrest [Fatal]
  - Cytokine release syndrome [Unknown]
  - Hepatic enzyme increased [Unknown]
  - Acute myeloid leukaemia [Unknown]
  - Acute hepatic failure [Unknown]
  - Sepsis [Unknown]
